FAERS Safety Report 16827071 (Version 10)
Quarter: 2021Q1

REPORT INFORMATION
  Report Type: Report from Study
  Country: DE (occurrence: DE)
  Receive Date: 20190919
  Receipt Date: 20210316
  Transmission Date: 20210419
  Serious: Yes (Hospitalization)
  Sender: FDA-Public Use
  Company Number: DE-ROCHE-1764639

PATIENT
  Age: 57 Year
  Sex: Male
  Weight: 85 kg

DRUGS (99)
  1. CARBOSTESIN [Concomitant]
     Active Substance: BUPIVACAINE HYDROCHLORIDE
     Indication: BACK PAIN
     Dates: start: 20170504, end: 20170504
  2. IBUPROFEN. [Concomitant]
     Active Substance: IBUPROFEN
     Dates: start: 20170814, end: 20170814
  3. NOVAMINSULFON [Concomitant]
     Active Substance: METAMIZOLE
     Dates: start: 20190106, end: 20190106
  4. NOVAMINSULFON [Concomitant]
     Active Substance: METAMIZOLE
     Dates: start: 20180309, end: 20180309
  5. RANITIDIN [Concomitant]
     Active Substance: RANITIDINE HYDROCHLORIDE
     Dates: start: 20160105
  6. PROCAINE [Concomitant]
     Active Substance: PROCAINE
     Dates: start: 20130909, end: 20130910
  7. APIXABAN [Concomitant]
     Active Substance: APIXABAN
     Dates: start: 20210128
  8. URBASON [Concomitant]
     Active Substance: METHYLPREDNISOLONE
     Dosage: WORSENING OF MSWALKING DISTANCE
     Dates: start: 20160822, end: 20160824
  9. FAMPRIDINE [Concomitant]
     Active Substance: DALFAMPRIDINE
     Indication: MULTIPLE SCLEROSIS
     Dates: start: 20110928
  10. IBUPROFEN. [Concomitant]
     Active Substance: IBUPROFEN
     Dates: start: 20171022, end: 20171022
  11. TRIAMHEXAL [Concomitant]
     Active Substance: TRIAMCINOLONE
     Dates: start: 20171113, end: 20171113
  12. XARELTO [Concomitant]
     Active Substance: RIVAROXABAN
     Dosage: PROPHYLAXIS EMBOLISM
     Dates: start: 20171023, end: 20171109
  13. CIPROBAY [Concomitant]
     Dates: start: 20170409, end: 20170414
  14. RANITIDINE. [Concomitant]
     Active Substance: RANITIDINE
     Dates: start: 20160621
  15. PROCAINE [Concomitant]
     Active Substance: PROCAINE
     Dates: start: 20140610, end: 20140612
  16. AMLODIPIN [Concomitant]
     Active Substance: AMLODIPINE BESYLATE
     Indication: HYPERTENSION
     Dates: start: 20130614, end: 20160829
  17. OCRELIZUMAB. [Suspect]
     Active Substance: OCRELIZUMAB
     Indication: PRIMARY PROGRESSIVE MULTIPLE SCLEROSIS
     Dosage: ALSO RECEIVED ON 16/MAY/2012 (200 ML) 18/OCT/2012 (200 ML), 01/NOV/2012 (200 ML), 04/APR/2013 (260 M
     Route: 042
     Dates: start: 20120502, end: 20150805
  18. BOTOX [Concomitant]
     Active Substance: ONABOTULINUMTOXINA
     Dosage: DOSE: 180
     Dates: start: 20180924, end: 20180924
  19. IBUPROFEN. [Concomitant]
     Active Substance: IBUPROFEN
     Indication: PYREXIA
     Dates: start: 20171025, end: 20171025
  20. IBUPROFEN. [Concomitant]
     Active Substance: IBUPROFEN
     Dates: start: 20170812, end: 20170812
  21. NOVAMINSULFON [Concomitant]
     Active Substance: METAMIZOLE
     Dates: start: 20180609, end: 20180609
  22. NOVAMINSULFON [Concomitant]
     Active Substance: METAMIZOLE
     Dates: start: 20190122, end: 20190123
  23. TRIAMHEXAL [Concomitant]
     Active Substance: TRIAMCINOLONE
     Dates: start: 20181228, end: 20181228
  24. CIPROBAY [Concomitant]
     Dates: start: 20180308, end: 20180308
  25. FAMPYRA [Concomitant]
     Active Substance: DALFAMPRIDINE
  26. FAMPYRA [Concomitant]
     Active Substance: DALFAMPRIDINE
     Dates: start: 20111128
  27. METHYLPREDNISOLONE. [Concomitant]
     Active Substance: METHYLPREDNISOLONE
     Indication: PREMEDICATION
     Dosage: 27/FEB/2020
  28. DORMICUM (INJ) [Concomitant]
     Active Substance: MIDAZOLAM HYDROCHLORIDE
     Dosage: INCONTINENCE
     Dates: start: 20170519, end: 20170519
  29. IBUPROFEN. [Concomitant]
     Active Substance: IBUPROFEN
     Indication: HEADACHE
     Dates: start: 20161231, end: 20161231
  30. IBUPROFEN. [Concomitant]
     Active Substance: IBUPROFEN
     Indication: ERYSIPELAS
     Dates: start: 20170103, end: 20170103
  31. IBUPROFEN. [Concomitant]
     Active Substance: IBUPROFEN
     Dates: start: 20180507
  32. IBUPROFEN. [Concomitant]
     Active Substance: IBUPROFEN
     Dates: start: 20180516, end: 20180516
  33. MIDAZOLAM. [Concomitant]
     Active Substance: MIDAZOLAM
     Dosage: FOR COLOSCOPY
     Dates: start: 20140219, end: 20140219
  34. NOVAMINSULFON [Concomitant]
     Active Substance: METAMIZOLE
     Dates: start: 20180827, end: 20180827
  35. TRIAMHEXAL [Concomitant]
     Active Substance: TRIAMCINOLONE
     Dates: start: 20170608, end: 20170608
  36. TRIAMHEXAL [Concomitant]
     Active Substance: TRIAMCINOLONE
     Dates: start: 20170807, end: 20170807
  37. PROCAINE [Concomitant]
     Active Substance: PROCAINE
     Dates: start: 20150707, end: 20150709
  38. TORASEMIDE [Concomitant]
     Active Substance: TORSEMIDE
     Indication: HYPERTENSION
     Dates: start: 20160811
  39. LYRICA [Concomitant]
     Active Substance: PREGABALIN
     Indication: MULTIPLE SCLEROSIS
     Dates: start: 200801
  40. PARACETAMOL [Concomitant]
     Active Substance: ACETAMINOPHEN
     Indication: PREMEDICATION
     Dosage: 27/FEB/2020
  41. CARBOSTESIN [Concomitant]
     Active Substance: BUPIVACAINE HYDROCHLORIDE
     Dates: start: 20170807, end: 20170807
  42. CARBOSTESIN [Concomitant]
     Active Substance: BUPIVACAINE HYDROCHLORIDE
     Dates: start: 20190204, end: 20190204
  43. CEFUROXIM [Concomitant]
     Active Substance: CEFUROXIME
     Dates: start: 20161225, end: 20161227
  44. IBUPROFEN. [Concomitant]
     Active Substance: IBUPROFEN
     Dates: start: 20170910, end: 20170911
  45. NOVAMINSULFON [Concomitant]
     Active Substance: METAMIZOLE
     Indication: HEADACHE
     Dates: start: 20180404, end: 20180404
  46. FRAGMIN [Concomitant]
     Active Substance: DALTEPARIN SODIUM
     Indication: PULMONARY EMBOLISM
     Dates: start: 20171019, end: 20171022
  47. PROCAINE [Concomitant]
     Active Substance: PROCAINE
     Indication: BACK PAIN
     Dates: start: 20140606, end: 20140606
  48. PROCAINE [Concomitant]
     Active Substance: PROCAINE
     Indication: BACK PAIN
     Dates: start: 20130906, end: 20130906
  49. FOSFOMYCIN [Concomitant]
     Active Substance: FOSFOMYCIN
     Route: 048
     Dates: start: 20190823, end: 20190823
  50. RANITIC [Concomitant]
     Active Substance: RANITIDINE HYDROCHLORIDE
     Indication: PREMEDICATION
     Dosage: 27/FEB/2020
  51. AMOXICILLIN. [Concomitant]
     Active Substance: AMOXICILLIN
     Dates: start: 20181113, end: 20181116
  52. CARBOSTESIN [Concomitant]
     Active Substance: BUPIVACAINE HYDROCHLORIDE
     Dates: start: 20170710, end: 20170710
  53. IBUPROFEN. [Concomitant]
     Active Substance: IBUPROFEN
     Dates: start: 20180106, end: 20180106
  54. INSTILLAGEL [Concomitant]
     Active Substance: CHLORHEXIDINE GLUCONATE\LIDOCAINE HYDROCHLORIDE
     Dosage: FOR SELF CATHETERIZATION
     Dates: start: 20140415
  55. NOVALGIN (METAMIZOLE SODIUM) [Concomitant]
     Active Substance: METAMIZOLE SODIUM
     Indication: HEADACHE
     Dates: start: 20190607, end: 20190607
  56. NOVAMINSULFON [Concomitant]
     Active Substance: METAMIZOLE
     Dates: start: 20180606, end: 20180607
  57. NOVAMINSULFON [Concomitant]
     Active Substance: METAMIZOLE
     Dates: start: 20180306, end: 20180308
  58. NOVAMINSULFON [Concomitant]
     Active Substance: METAMIZOLE
     Dates: start: 20181107, end: 20181107
  59. NOVAMINSULFON [Concomitant]
     Active Substance: METAMIZOLE
     Dates: start: 20190727, end: 20190728
  60. TRIAMHEXAL [Concomitant]
     Active Substance: TRIAMCINOLONE
     Indication: BACK PAIN
     Dates: start: 20170504, end: 20170504
  61. TRIAMHEXAL [Concomitant]
     Active Substance: TRIAMCINOLONE
     Dates: start: 20190204, end: 20190204
  62. TRIAMHEXAL [Concomitant]
     Active Substance: TRIAMCINOLONE
     Dates: start: 20180628, end: 20180628
  63. MIDAZOLAM. [Concomitant]
     Active Substance: MIDAZOLAM
     Dosage: FOR COLOSCOPY
     Dates: start: 20140219, end: 20140219
  64. MOVICOL [Concomitant]
     Active Substance: POLYETHYLENE GLYCOL 3350\POTASSIUM CHLORIDE\SODIUM BICARBONATE\SODIUM CHLORIDE
     Indication: CONSTIPATION
     Dates: start: 20151106
  65. ACIMETHIN [Concomitant]
     Active Substance: METHIONINE
  66. OCRELIZUMAB. [Suspect]
     Active Substance: OCRELIZUMAB
     Indication: PRIMARY PROGRESSIVE MULTIPLE SCLEROSIS
     Dosage: OPEN LABEL. ON 19/JAN/2016, THE PATIENT RECEIVED THE MOST RECENT DOSE OF OCRELIZUMAB (260 ML) PRIOR
     Route: 042
     Dates: start: 20160105
  67. FENISTIL [Concomitant]
     Active Substance: DIMETHINDENE
     Indication: PREMEDICATION
     Dosage: ON 25/SEP/2019, 27/FEB/2020
  68. URBASON [Concomitant]
     Active Substance: METHYLPREDNISOLONE
     Indication: PREMEDICATION
     Dates: start: 20150219, end: 20150219
  69. BOTOX [Concomitant]
     Active Substance: ONABOTULINUMTOXINA
     Indication: INCONTINENCE
     Dosage: DOSE: 180
     Dates: start: 20170519, end: 20170519
  70. CARBOSTESIN [Concomitant]
     Active Substance: BUPIVACAINE HYDROCHLORIDE
     Dates: start: 20170608, end: 20170608
  71. CEFUROXIM [Concomitant]
     Active Substance: CEFUROXIME
     Indication: PYREXIA
     Dates: start: 20160508, end: 20160514
  72. COTRIM FORTE [Concomitant]
     Active Substance: SULFAMETHOXAZOLE\TRIMETHOPRIM
     Indication: INCONTINENCE
     Dates: start: 20170519, end: 20170519
  73. DORMICUM (INJ) [Concomitant]
     Active Substance: MIDAZOLAM HYDROCHLORIDE
     Indication: INCONTINENCE
     Dosage: INDICATION: BOTOX INJECTION IN BLADDER
     Dates: start: 20160208, end: 20160208
  74. NOVAMINSULFON [Concomitant]
     Active Substance: METAMIZOLE
     Indication: PYREXIA
     Dates: start: 20181003, end: 20181003
  75. NOVAMINSULFON [Concomitant]
     Active Substance: METAMIZOLE
     Indication: CYSTITIS
     Dates: start: 20180605, end: 20180605
  76. NOVAMINSULFON [Concomitant]
     Active Substance: METAMIZOLE
     Dates: start: 20180329, end: 20180402
  77. TRIAMHEXAL [Concomitant]
     Active Substance: TRIAMCINOLONE
     Dates: start: 20170608, end: 20170608
  78. TRIAMHEXAL [Concomitant]
     Active Substance: TRIAMCINOLONE
     Dates: start: 20170710, end: 20170710
  79. TRIAMHEXAL [Concomitant]
     Active Substance: TRIAMCINOLONE
     Dates: start: 20181115, end: 20181115
  80. CIPROBAY [Concomitant]
     Indication: CYSTITIS
     Dates: start: 20170901, end: 20170909
  81. CIPROBAY [Concomitant]
     Dates: start: 20180122, end: 20180127
  82. IBUFLAM [Concomitant]
     Indication: BURSITIS
     Dates: start: 20180903, end: 20180907
  83. PROCAINE [Concomitant]
     Active Substance: PROCAINE
     Dates: start: 20140210, end: 20140212
  84. TORASEMIDE [Concomitant]
     Active Substance: TORSEMIDE
     Dates: start: 20160720, end: 20160803
  85. XYLOCAIN [Concomitant]
     Indication: TOOTH EXTRACTION
     Dates: start: 20170814, end: 20170814
  86. TAZOBACTAM [Concomitant]
     Active Substance: TAZOBACTAM
     Route: 042
     Dates: start: 20190904, end: 20190911
  87. RAMIPRIL. [Concomitant]
     Active Substance: RAMIPRIL
  88. PANTOZOL [Concomitant]
     Active Substance: PANTOPRAZOLE SODIUM
     Indication: GASTROINTESTINAL DISORDER PROPHYLAXIS
     Dates: start: 20110928
  89. AMOXICILLIN. [Concomitant]
     Active Substance: AMOXICILLIN
     Indication: ERYSIPELAS
     Dates: start: 20180507
  90. AMOXICILLIN. [Concomitant]
     Active Substance: AMOXICILLIN
     Indication: ROOT CANAL INFECTION
     Dates: start: 20180809, end: 20180813
  91. CARBOSTESIN [Concomitant]
     Active Substance: BUPIVACAINE HYDROCHLORIDE
     Dates: start: 20171113, end: 20171113
  92. CARBOSTESIN [Concomitant]
     Active Substance: BUPIVACAINE HYDROCHLORIDE
     Dates: start: 20180628, end: 20180628
  93. CARBOSTESIN [Concomitant]
     Active Substance: BUPIVACAINE HYDROCHLORIDE
     Dates: start: 20181115, end: 20181115
  94. DORMICUM (INJ) [Concomitant]
     Active Substance: MIDAZOLAM HYDROCHLORIDE
     Dosage: INDICATION: BOTOX INJECTION IN BLADDER
     Dates: start: 20150130, end: 20150130
  95. IBUPROFEN. [Concomitant]
     Active Substance: IBUPROFEN
     Indication: TOOTH EXTRACTION
     Dates: start: 20171103, end: 20171103
  96. NOVAMINSULFON [Concomitant]
     Active Substance: METAMIZOLE
     Dates: start: 20190216, end: 20190217
  97. NOVAMINSULFON [Concomitant]
     Active Substance: METAMIZOLE
     Dates: start: 20181221, end: 20181222
  98. XARELTO [Concomitant]
     Active Substance: RIVAROXABAN
     Indication: THROMBOSIS PROPHYLAXIS
     Dosage: PROPHYLAXIS EMBOLISM
     Dates: start: 20171110
  99. TOREM [Concomitant]
     Active Substance: TORSEMIDE

REACTIONS (3)
  - Cystitis [Recovered/Resolved]
  - Urinary tract infection [Recovered/Resolved]
  - Urinary tract infection [Recovered/Resolved]

NARRATIVE: CASE EVENT DATE: 20160407
